FAERS Safety Report 9265134 (Version 1)
Quarter: 2013Q2

REPORT INFORMATION
  Report Type: Spontaneous
  Country: DE (occurrence: DE)
  Receive Date: 20130501
  Receipt Date: 20130501
  Transmission Date: 20140414
  Serious: Yes (Hospitalization, Congenital Anomaly)
  Sender: FDA-Public Use
  Company Number: DE-US-EMD SERONO, INC.-7208038

PATIENT
  Sex: Female

DRUGS (3)
  1. REBIF [Suspect]
     Indication: RELAPSING-REMITTING MULTIPLE SCLEROSIS
     Route: 064
  2. PARACETAMOL [Concomitant]
     Indication: MULTIPLE SCLEROSIS
     Route: 064
  3. FOLIC ACID [Concomitant]
     Indication: NEURAL TUBE DEFECT
     Route: 064

REACTIONS (3)
  - Ventricular septal defect [Not Recovered/Not Resolved]
  - Developmental hip dysplasia [Recovering/Resolving]
  - Sepsis neonatal [Recovered/Resolved]
